FAERS Safety Report 6344144-6 (Version None)
Quarter: 2009Q3

REPORT INFORMATION
  Report Type: 
  Country: None (occurrence: None)
  Receive Date: 20090903
  Receipt Date: 20090903
  Transmission Date: 20100115
  Serious: Yes (Other)
  Sender: FDA-Public Use
  Company Number: None

PATIENT
  Age: 32 Year
  Sex: Female
  Weight: 53.5244 kg

DRUGS (1)
  1. AMPHETAMINE SULFATE TAB [Suspect]
     Indication: ATTENTION DEFICIT/HYPERACTIVITY DISORDER
     Dosage: 20MG 2 TIMES A DAY PO
     Route: 048
     Dates: start: 20090613, end: 20090826

REACTIONS (8)
  - APPETITE DISORDER [None]
  - DRY MOUTH [None]
  - HEADACHE [None]
  - INSOMNIA [None]
  - POLYDIPSIA [None]
  - PRODUCT QUALITY ISSUE [None]
  - VISION BLURRED [None]
  - WEIGHT DECREASED [None]
